FAERS Safety Report 26083287 (Version 1)
Quarter: 2025Q4

REPORT INFORMATION
  Report Type: Spontaneous
  Country: US (occurrence: US)
  Receive Date: 20251124
  Receipt Date: 20251124
  Transmission Date: 20260117
  Serious: No
  Sender: INCYTE
  Company Number: US-EVENT-004949

PATIENT

DRUGS (1)
  1. JAKAFI [Suspect]
     Active Substance: RUXOLITINIB
     Indication: Metastatic renal cell carcinoma
     Dosage: 10 MILLIGRAM, BID
     Route: 065

REACTIONS (1)
  - Off label use [Unknown]
